FAERS Safety Report 7878298-7 (Version None)
Quarter: 2011Q4

REPORT INFORMATION
  Report Type: 
  Country: None (occurrence: None)
  Receive Date: 20111101
  Receipt Date: 20111026
  Transmission Date: 20120403
  Serious: Yes (Hospitalization)
  Sender: FDA-Public Use
  Company Number: AU-JNJFOC-20111003737

PATIENT
  Sex: Male
  Weight: 57.1 kg

DRUGS (4)
  1. ZOLADEX [Concomitant]
     Indication: HORMONE THERAPY
     Route: 065
     Dates: start: 20070101
  2. ABIRATERONE ACETATE [Suspect]
     Route: 048
  3. PREDNISOLONE [Suspect]
     Indication: PROSTATE CANCER METASTATIC
     Route: 048
     Dates: start: 20110802
  4. ABIRATERONE ACETATE [Suspect]
     Indication: PROSTATE CANCER METASTATIC
     Route: 048
     Dates: start: 20110802

REACTIONS (2)
  - ABDOMINAL PAIN UPPER [None]
  - CONFUSIONAL STATE [None]
